FAERS Safety Report 4408609-6 (Version None)
Quarter: 2004Q3

REPORT INFORMATION
  Report Type: 
  Country: None (occurrence: None)
  Receive Date: 20040723
  Receipt Date: 20040714
  Transmission Date: 20050211
  Serious: Yes (Disabling)
  Sender: FDA-Public Use
  Company Number: 2004-03138

PATIENT
  Age: 37 Year
  Sex: Female

DRUGS (3)
  1. THIORIDAZINE (WATSON LABORATORIES) (THIORIDAZINE HYDROCHLORIDE) TABLET [Suspect]
     Indication: CONVERSION DISORDER
     Dosage: 300 MG, TID; ORAL
     Route: 048
     Dates: start: 19990901, end: 20000101
  2. THIORIDAZINE (WATSON LABORATORIES) (THIORIDAZINE HYDROCHLORIDE) TABLET [Suspect]
     Indication: DRUG WITHDRAWAL MAINTENANCE THERAPY
     Dosage: 300 MG, TID; ORAL
     Route: 048
     Dates: start: 19990901, end: 20000101
  3. CARBAMAZEPINE [Concomitant]

REACTIONS (2)
  - ACQUIRED NIGHT BLINDNESS [None]
  - RETINOPATHY [None]
